FAERS Safety Report 6226248-1 (Version None)
Quarter: 2009Q2

REPORT INFORMATION
  Report Type: 
  Country: None (occurrence: None)
  Receive Date: 20090612
  Receipt Date: 20090512
  Transmission Date: 20091009
  Serious: No
  Sender: FDA-Public Use
  Company Number: US-ABBOTT-09P-163-0573047-00

PATIENT
  Sex: Female
  Weight: 63.106 kg

DRUGS (1)
  1. HUMIRA [Suspect]
     Indication: CROHN'S DISEASE
     Dosage: INITIAL DOSE ONLY
     Route: 058
     Dates: start: 20070530, end: 20070530

REACTIONS (1)
  - RASH [None]
